FAERS Safety Report 9274805 (Version 1)
Quarter: 2013Q2

REPORT INFORMATION
  Report Type: Spontaneous
  Country: VE (occurrence: None)
  Receive Date: 20130429
  Receipt Date: 20130429
  Transmission Date: 20140414
  Serious: No
  Sender: FDA-Public Use
  Company Number: 1304VEN014017

PATIENT
  Sex: Female

DRUGS (1)
  1. CEDAX [Suspect]
     Indication: URINARY TRACT INFECTION
     Route: 048

REACTIONS (2)
  - Thrombocytopenic purpura [None]
  - Breast feeding [None]
